FAERS Safety Report 5957667-6 (Version None)
Quarter: 2008Q4

REPORT INFORMATION
  Report Type: 
  Country: None (occurrence: None)
  Receive Date: 20081117
  Receipt Date: 20081031
  Transmission Date: 20090506
  Serious: Yes (Hospitalization)
  Sender: FDA-Public Use
  Company Number: 20546

PATIENT
  Age: 68 Year
  Sex: Female

DRUGS (9)
  1. CARBOPLATIN [Suspect]
     Indication: NON-SMALL CELL LUNG CANCER
     Dates: start: 20070124
  2. GEMZAR [Suspect]
     Indication: NON-SMALL CELL LUNG CANCER
     Dates: start: 20080124
  3. DIGOXIN [Concomitant]
  4. DILTIAZEM HCL [Concomitant]
  5. FUROSEMIDE [Concomitant]
  6. NITROGLYCERIN [Concomitant]
  7. IPRATROPIUM BROMIDE [Concomitant]
  8. ALBUTEROL SULFATE [Concomitant]
  9. WARFARIN SODIUM [Concomitant]

REACTIONS (3)
  - HEPATIC FAILURE [None]
  - HEPATIC NECROSIS [None]
  - PERITONITIS BACTERIAL [None]
